FAERS Safety Report 14747334 (Version 1)
Quarter: 2018Q2

REPORT INFORMATION
  Report Type: Spontaneous
  Country: US (occurrence: US)
  Receive Date: 20180411
  Receipt Date: 20180411
  Transmission Date: 20180711
  Serious: No
  Sender: FDA-Public Use
  Company Number: US-BIOMARINAP-US-2018-117738

PATIENT
  Age: 2 Year
  Sex: Female
  Weight: 15.1 kg

DRUGS (1)
  1. VIMIZIM [Suspect]
     Active Substance: ELOSULFASE ALFA
     Indication: MUCOPOLYSACCHARIDOSIS IV
     Dosage: 30 MG, QW
     Route: 042
     Dates: start: 20170103

REACTIONS (3)
  - Pyrexia [Recovered/Resolved]
  - Otitis media acute [Recovered/Resolved]
  - Respiratory symptom [Recovered/Resolved]

NARRATIVE: CASE EVENT DATE: 20180323
